FAERS Safety Report 6880793-4 (Version None)
Quarter: 2010Q3

REPORT INFORMATION
  Report Type: 
  Country: None (occurrence: None)
  Receive Date: 20100728
  Receipt Date: 20100721
  Transmission Date: 20110219
  Serious: Yes (Hospitalization)
  Sender: FDA-Public Use
  Company Number: JP-ELI_LILLY_AND_COMPANY-JP201001004461

PATIENT
  Sex: Female
  Weight: 52 kg

DRUGS (3)
  1. GEMZAR [Suspect]
     Indication: MALIGNANT NEOPLASM OF AMPULLA OF VATER
     Dosage: 1400 MG, OTHER
     Route: 042
     Dates: start: 20090827, end: 20100107
  2. INSULIN [Concomitant]
     Indication: TYPE 2 DIABETES MELLITUS
     Route: 058
  3. CORTICOSTEROID NOS [Concomitant]
     Route: 065

REACTIONS (6)
  - AXONAL NEUROPATHY [None]
  - CONTUSION [None]
  - FALL [None]
  - INFLAMMATION [None]
  - PYREXIA [None]
  - SPINAL COLUMN STENOSIS [None]
